FAERS Safety Report 25752006 (Version 1)
Quarter: 2025Q3

REPORT INFORMATION
  Report Type: Spontaneous
  Country: US (occurrence: None)
  Receive Date: 20250902
  Receipt Date: 20250902
  Transmission Date: 20251021
  Serious: Yes (Other)
  Sender: FDA-CTU
  Company Number: None

PATIENT
  Age: 64 Year
  Sex: Male

DRUGS (1)
  1. TADALAFIL [Suspect]
     Active Substance: TADALAFIL
     Indication: Pulmonary hypertension
     Dosage: 20MG QD ORAL ?
     Route: 048
     Dates: start: 20250827

REACTIONS (3)
  - Back pain [None]
  - Sleep disorder [None]
  - Adverse drug reaction [None]

NARRATIVE: CASE EVENT DATE: 20250828
